FAERS Safety Report 14533285 (Version 1)
Quarter: 2018Q1

REPORT INFORMATION
  Report Type: Spontaneous
  Country: AT (occurrence: AT)
  Receive Date: 20180215
  Receipt Date: 20180215
  Transmission Date: 20180509
  Serious: Yes (Death)
  Sender: FDA-Public Use
  Company Number: AT-ROCHE-2073768

PATIENT

DRUGS (2)
  1. ZEVALIN [Suspect]
     Active Substance: IBRITUMOMAB TIUXETAN
     Indication: NON-HODGKIN^S LYMPHOMA
     Dosage: 11-15 MBQ/KG, ONCE/SINGLE
     Route: 042
  2. RITUXIMAB. [Suspect]
     Active Substance: RITUXIMAB
     Indication: NON-HODGKIN^S LYMPHOMA
     Dosage: 250 MG/M2, UNK (ON DAY 1 AND ANOTHER ONE ON DAY 8)
     Route: 041

REACTIONS (2)
  - Non-Hodgkin^s lymphoma [Fatal]
  - Malignant neoplasm progression [Fatal]
